FAERS Safety Report 7674553-4 (Version None)
Quarter: 2011Q3

REPORT INFORMATION
  Report Type: 
  Country: None (occurrence: None)
  Receive Date: 20110810
  Receipt Date: 20110727
  Transmission Date: 20111222
  Serious: Yes (Other)
  Sender: FDA-Public Use
  Company Number: PHHY2011US67740

PATIENT
  Sex: Female

DRUGS (3)
  1. KEFLEX [Suspect]
     Dosage: UNK UKN, UNK
  2. DIOVAN HCT [Suspect]
     Indication: RENAL HYPERTENSION
     Dosage: UNK UKN, UNK
  3. AMOXICILLIN [Suspect]
     Dosage: UNK UKN, UNK

REACTIONS (5)
  - ERYTHEMA [None]
  - PNEUMONIA [None]
  - SWELLING FACE [None]
  - SINUSITIS [None]
  - SWOLLEN TONGUE [None]
